FAERS Safety Report 8962894 (Version 1)
Quarter: 2012Q4

REPORT INFORMATION
  Report Type: 
  Country: US (occurrence: US)
  Receive Date: 20121214
  Receipt Date: 20121214
  Transmission Date: 20130627
  Serious: No
  Sender: FDA-Public Use
  Company Number: US-B.I. PHARMACEUTICALS,INC./RIDGEFIELD-2012-BI-02277BP

PATIENT
  Age: 64 None
  Sex: Male
  Weight: 59 kg

DRUGS (4)
  1. COMBIVENT [Suspect]
     Indication: ASTHMA
     Route: 055
     Dates: start: 201210
  2. PRO AIR [Concomitant]
     Route: 055
  3. SINGULAIR [Concomitant]
     Route: 048
  4. ADVAIR [Concomitant]
     Route: 055

REACTIONS (7)
  - Wheezing [Not Recovered/Not Resolved]
  - Anosmia [Not Recovered/Not Resolved]
  - Ageusia [Not Recovered/Not Resolved]
  - Viral sinusitis [Recovered/Resolved]
  - Nasal congestion [Not Recovered/Not Resolved]
  - Cough [Not Recovered/Not Resolved]
  - Tooth disorder [Not Recovered/Not Resolved]
